FAERS Safety Report 9202053 (Version 1)
Quarter: 2013Q2

REPORT INFORMATION
  Report Type: Spontaneous
  Country: NL (occurrence: NL)
  Receive Date: 20130401
  Receipt Date: 20130401
  Transmission Date: 20140414
  Serious: Yes (Hospitalization)
  Sender: FDA-Public Use
  Company Number: NL-PFIZER INC-2013099173

PATIENT
  Age: 74 Year
  Sex: Female

DRUGS (6)
  1. CYCLOPHOSPHAMIDE [Suspect]
     Indication: DIFFUSE LARGE B-CELL LYMPHOMA
     Dosage: SIX R-CHOP CYCLES, EVERY 2 WEEKS
  2. DOXORUBICIN HCL [Suspect]
     Indication: DIFFUSE LARGE B-CELL LYMPHOMA
     Dosage: SIX R-CHOP CYCLES, EVERY 2 WEEKS
  3. VINCRISTINE SULFATE [Suspect]
     Indication: DIFFUSE LARGE B-CELL LYMPHOMA
     Dosage: SIX R-CHOP CYCLES, EVERY 2 WEEKS
  4. RITUXIMAB [Suspect]
     Indication: DIFFUSE LARGE B-CELL LYMPHOMA
     Dosage: EVERY 2 WEEKS, FOR A TOTAL OF SIX CYCLES AND TWO ADDITIONAL ADMINISTRATIONS
  5. PREDNISOLONE [Suspect]
     Dosage: SIX R-CHOP CYCLES, EVERY 2 WEEKS
  6. GRANULOCYTE COLONY STIMULATING FACTOR [Concomitant]
     Dosage: UNK

REACTIONS (3)
  - Fatigue [Unknown]
  - Weight decreased [Not Recovered/Not Resolved]
  - Cognitive disorder [Not Recovered/Not Resolved]
